FAERS Safety Report 7006708-6 (Version None)
Quarter: 2010Q3

REPORT INFORMATION
  Report Type: 
  Country: None (occurrence: None)
  Receive Date: 20100922
  Receipt Date: 20100921
  Transmission Date: 20110219
  Serious: Yes (Hospitalization)
  Sender: FDA-Public Use
  Company Number: DE-BIOGENIDEC-2010BI031739

PATIENT
  Age: 29 Year
  Sex: Female
  Weight: 60 kg

DRUGS (1)
  1. TYSABRI [Suspect]
     Indication: RELAPSING-REMITTING MULTIPLE SCLEROSIS
     Route: 042
     Dates: start: 20080101

REACTIONS (2)
  - NIGHT SWEATS [None]
  - PERICARDIAL EFFUSION [None]
